FAERS Safety Report 4337599-X (Version None)
Quarter: 2004Q2

REPORT INFORMATION
  Report Type: 
  Country: None (occurrence: None)
  Receive Date: 20040413
  Receipt Date: 20040108
  Transmission Date: 20050107
  Serious: No
  Sender: FDA-Public Use
  Company Number: US-GLAXOSMITHKLINE-A0492005A

PATIENT
  Sex: Male

DRUGS (3)
  1. DEXEDRINE [Suspect]
     Indication: NARCOLEPSY
     Dosage: 15MG PER DAY
     Route: 048
  2. DIGOXIN [Concomitant]
  3. COUMADIN [Concomitant]

REACTIONS (1)
  - PALPITATIONS [None]
